FAERS Safety Report 7376551-7 (Version None)
Quarter: 2011Q1

REPORT INFORMATION
  Report Type: 
  Country: None (occurrence: None)
  Receive Date: 20110325
  Receipt Date: 20110317
  Transmission Date: 20110831
  Serious: Yes (Hospitalization)
  Sender: FDA-Public Use
  Company Number: US-AMGEN-USASP2011009509

PATIENT
  Age: 36 Year
  Sex: Male

DRUGS (2)
  1. ENBREL [Suspect]
     Indication: PSORIATIC ARTHROPATHY
  2. ENBREL [Suspect]
     Indication: PSORIASIS
     Dosage: 50 MG, QWK
     Dates: start: 20080401, end: 20080701

REACTIONS (5)
  - PANCREATIC CYST [None]
  - PSORIASIS [None]
  - DRUG EFFECT DECREASED [None]
  - ARTHRALGIA [None]
  - PSORIATIC ARTHROPATHY [None]
